FAERS Safety Report 6143922-6 (Version None)
Quarter: 2009Q2

REPORT INFORMATION
  Report Type: 
  Country: None (occurrence: None)
  Receive Date: 20090406
  Receipt Date: 20090326
  Transmission Date: 20091009
  Serious: Yes (Other)
  Sender: FDA-Public Use
  Company Number: NL-PFIZER INC-2009191362

PATIENT

DRUGS (3)
  1. AROMASIN [Suspect]
     Indication: BREAST CANCER
     Dosage: 25 MG, 1X/DAY
     Route: 048
     Dates: start: 20080901
  2. CIPRAMIL [Suspect]
     Dosage: 20 MG, 1X/DAY
     Route: 048
     Dates: start: 19980101
  3. RABEPRAZOLE SODIUM [Concomitant]

REACTIONS (10)
  - ABNORMAL FAECES [None]
  - ARTHRALGIA [None]
  - DISTURBANCE IN ATTENTION [None]
  - DIZZINESS [None]
  - FATIGUE [None]
  - HEADACHE [None]
  - HOT FLUSH [None]
  - MOOD SWINGS [None]
  - SLEEP DISORDER [None]
  - WEIGHT INCREASED [None]
